FAERS Safety Report 14650394 (Version 1)
Quarter: 2018Q1

REPORT INFORMATION
  Report Type: Spontaneous
  Country: NO (occurrence: NO)
  Receive Date: 20180316
  Receipt Date: 20180316
  Transmission Date: 20180509
  Serious: Yes (Other)
  Sender: FDA-Public Use
  Company Number: NO-SHIRE-NO201809657

PATIENT

DRUGS (1)
  1. ELVANSE [Suspect]
     Active Substance: LISDEXAMFETAMINE DIMESYLATE
     Indication: ATTENTION DEFICIT/HYPERACTIVITY DISORDER
     Dosage: 80 MG, 1X/DAY:QD
     Route: 065

REACTIONS (7)
  - Dry mouth [Unknown]
  - Drug effect decreased [Unknown]
  - Erectile dysfunction [Unknown]
  - Plague [Unknown]
  - Libido disorder [Unknown]
  - Anxiety [Unknown]
  - Seizure [Unknown]
